FAERS Safety Report 5793846-9 (Version None)
Quarter: 2008Q2

REPORT INFORMATION
  Report Type: 
  Country: None (occurrence: None)
  Receive Date: 20080627
  Receipt Date: 20080625
  Transmission Date: 20081010
  Serious: Yes (Life-Threatening, Hospitalization)
  Sender: FDA-Public Use
  Company Number: US-BOEHRINGER INGELHEIM GMBH, GERMANY-2008-BP-08581BP

PATIENT
  Sex: Female

DRUGS (15)
  1. AGGRENOX [Suspect]
     Indication: LACUNAR INFARCTION
     Dates: start: 20080522, end: 20080531
  2. CELEBREX [Suspect]
  3. HYDROCODONE [Concomitant]
     Indication: PAIN
  4. TRAMADOL HCL [Concomitant]
  5. XANAX [Concomitant]
  6. FLEXERIL [Concomitant]
  7. FOSAMAX [Concomitant]
  8. PREMARIN [Concomitant]
  9. NEURONTIN [Concomitant]
  10. TOPROL-XL [Concomitant]
  11. PREVACID [Concomitant]
  12. SEROQUEL [Concomitant]
  13. EFFEXOR [Concomitant]
  14. REMERON [Concomitant]
  15. LAMICTAL [Concomitant]

REACTIONS (7)
  - BLEEDING TIME PROLONGED [None]
  - CONTUSION [None]
  - ERYTHEMA [None]
  - HAEMOGLOBIN DECREASED [None]
  - HAEMORRHAGE SUBCUTANEOUS [None]
  - MASS [None]
  - SOFT TISSUE HAEMORRHAGE [None]
